FAERS Safety Report 25041230 (Version 1)
Quarter: 2025Q1

REPORT INFORMATION
  Report Type: Report from Study
  Country: US (occurrence: US)
  Receive Date: 20250305
  Receipt Date: 20250305
  Transmission Date: 20250408
  Serious: Yes (Other)
  Sender: TAKEDA
  Company Number: US-TAKEDA-2025TUS022995

PATIENT
  Sex: Female

DRUGS (1)
  1. PRUCALOPRIDE [Suspect]
     Active Substance: PRUCALOPRIDE
     Indication: Product used for unknown indication

REACTIONS (7)
  - Brain neoplasm malignant [Unknown]
  - Gastrointestinal disorder [Unknown]
  - Constipation [Unknown]
  - Insurance issue [Unknown]
  - Product use issue [Unknown]
  - Vomiting [Unknown]
  - Nausea [Unknown]
